FAERS Safety Report 22102779 (Version 2)
Quarter: 2023Q2

REPORT INFORMATION
  Report Type: Report from Study
  Country: HU (occurrence: HU)
  Receive Date: 20230316
  Receipt Date: 20230407
  Transmission Date: 20230722
  Serious: Yes (Life-Threatening, Hospitalization)
  Sender: FDA-Public Use
  Company Number: HU-ABBVIE-4326620

PATIENT
  Sex: Male

DRUGS (12)
  1. CARBIDOPA\LEVODOPA [Suspect]
     Active Substance: CARBIDOPA\LEVODOPA
     Indication: Parkinson^s disease
     Dosage: MORNING DOSE: 7.5 ML; CONTINUOUS DOSE: 4.5 ML/HOUR; EXTRA DOSE: 2.3 ML
     Route: 050
     Dates: start: 20230227
  2. CARBIDOPA\LEVODOPA [Suspect]
     Active Substance: CARBIDOPA\LEVODOPA
     Dosage: MORNING DOSE: 7.5 ML; CONTINUOUS DOSE: 4.5 ML/HOUR; EXTRA DOSE: 2.3 ML
     Route: 050
     Dates: start: 20230222, end: 20230223
  3. levodopa, benserazide (Madopar) [Concomitant]
     Indication: Parkinson^s disease
     Dosage: 200 MG LEVODOPA, 50 MG BENSERAZIDE / TABLET
     Route: 048
     Dates: start: 20230223, end: 20230227
  4. Atorvastatin (Atoris) [Concomitant]
     Indication: Blood cholesterol abnormal
     Dosage: FORM STRENGTH: 20 MILLIGRAM?FREQUENCY TEXT: 1 TABLET IN THE EVENING
     Route: 048
  5. apomorphine (Dacepton) [Concomitant]
     Indication: Parkinson^s disease
     Dosage: TIME INTERVAL: 0.16666667 DAYS: FORM STRENGTH: 7.5 MILLIGRAM
     Route: 058
  6. Metronidazole (Klion) [Concomitant]
     Indication: Product used for unknown indication
     Dates: start: 20230224
  7. Metronidazole (Klion) [Concomitant]
     Indication: Product used for unknown indication
     Dates: start: 20230224
  8. Pantoprazole (Pantoprazol) [Concomitant]
     Indication: Prophylaxis
     Dosage: FORM STRENGTH: 20 MILLIGRAM?FREQUENCY TEXT: 1 TABLET IN THE EVENING
     Route: 048
  9. ZINACEF [Concomitant]
     Active Substance: CEFUROXIME SODIUM
     Indication: Product used for unknown indication
     Dates: start: 20230224
  10. Clozapine (Leponex) [Concomitant]
     Indication: Depression
     Dosage: FORM STRENGTH: 25 MILLIGRAM?FREQUENCY TEXT: HALF TABLET IN THE EVENING
     Route: 048
  11. brimonidine, timolol (Combigan) [Concomitant]
     Indication: Glaucoma
     Dosage: FORM STRENGTH: 2 MILLIGRAM/MILLILITERS?FREQUENCY TEXT: 1 DROP TWICE DAILY
  12. acetylsalicylic acid (ASA Protect) [Concomitant]
     Indication: Prophylaxis
     Dosage: FORM STRENGTH: 100 MILLIGRAM
     Route: 048

REACTIONS (4)
  - Hypotension [Recovered/Resolved]
  - Oxygen saturation decreased [Recovering/Resolving]
  - Intra-abdominal haemorrhage [Recovered/Resolved]
  - Asthenia [Recovering/Resolving]

NARRATIVE: CASE EVENT DATE: 20230222
